FAERS Safety Report 22599654 (Version 1)
Quarter: 2023Q2

REPORT INFORMATION
  Report Type: Spontaneous
  Country: US (occurrence: None)
  Receive Date: 20230613
  Receipt Date: 20230613
  Transmission Date: 20230722
  Serious: Yes (Other)
  Sender: FDA-Public Use
  Company Number: None

PATIENT
  Sex: Female

DRUGS (20)
  1. ENBREL [Suspect]
     Active Substance: ETANERCEPT
     Indication: Rheumatoid arthritis
     Dosage: 50 MG/ML SUBCUTANEOUS?INJECT 50 MG UNDER THE SKIN (SUBCUTANEOUS INJECTION) EVERY WEEK?
     Route: 058
     Dates: start: 20230420
  2. ESTRADIOL CRE [Concomitant]
  3. GABAPENTIN [Concomitant]
     Active Substance: GABAPENTIN
  4. HUMIRA [Concomitant]
     Active Substance: ADALIMUMAB
  5. HYDROXYZ HCL TAB [Concomitant]
  6. LATUDA TAB [Concomitant]
  7. LOTEMAX SM GEL [Concomitant]
  8. PREDNISONE [Concomitant]
     Active Substance: PREDNISONE
  9. RESTASIS EMU [Concomitant]
  10. ALPRAZOLAM TAB [Concomitant]
  11. ATORVASTATIN [Concomitant]
     Active Substance: ATORVASTATIN
  12. FAMOTIDINE TAB [Concomitant]
  13. GABAPENTIN [Concomitant]
     Active Substance: GABAPENTIN
  14. LATUDA TAB [Concomitant]
  15. LEVOTHYROXIN TAB [Concomitant]
  16. HYDROCHLOROTHIAZIDE\LISINOPRIL [Concomitant]
     Active Substance: HYDROCHLOROTHIAZIDE\LISINOPRIL
  17. MYRBETRIQ TAB [Concomitant]
  18. PAROXETINE TAB [Concomitant]
  19. QUETIAPINE TAB [Concomitant]
  20. TRAZODONE TAB [Concomitant]

REACTIONS (3)
  - Transient ischaemic attack [None]
  - Pain [None]
  - Loss of personal independence in daily activities [None]
